FAERS Safety Report 14162302 (Version 1)
Quarter: 2017Q4

REPORT INFORMATION
  Report Type: Spontaneous
  Country: US (occurrence: US)
  Receive Date: 20171106
  Receipt Date: 20171106
  Transmission Date: 20180321
  Serious: No
  Sender: FDA-Public Use
  Company Number: US-PFIZER INC-2017284185

PATIENT
  Age: 63 Year
  Sex: Female
  Weight: 68.95 kg

DRUGS (3)
  1. SUTENT [Suspect]
     Active Substance: SUNITINIB MALATE
     Indication: RENAL CANCER METASTATIC
     Dosage: 50 MG, CYCLIC(2 WEEKS ON/1 WEEK OFF)
  2. SYNTHROID [Concomitant]
     Active Substance: LEVOTHYROXINE SODIUM
     Indication: THYROID DISORDER
     Dosage: UNK UNK, 1X/DAY
     Route: 048
     Dates: start: 201705
  3. SUTENT [Suspect]
     Active Substance: SUNITINIB MALATE
     Dosage: 50 MG, CYCLIC [ONCE A DAY FOR 28 DAYS AND THEN OFF FOR 14 DAYS AND THEN START AGAIN]
     Route: 048
     Dates: start: 201703

REACTIONS (2)
  - Hyperaesthesia [Not Recovered/Not Resolved]
  - Contusion [Not Recovered/Not Resolved]
